FAERS Safety Report 8624525-8 (Version None)
Quarter: 2012Q3

REPORT INFORMATION
  Report Type: 
  Country: None (occurrence: None)
  Receive Date: 20120810
  Receipt Date: 20120726
  Transmission Date: 20120928
  Serious: Yes (Other)
  Sender: FDA-Public Use
  Company Number: 2012MA009551

PATIENT
  Sex: Female

DRUGS (1)
  1. VERAPAMIL HCL [Suspect]
     Indication: HEMIPLEGIC MIGRAINE
     Dosage: 25 MG

REACTIONS (17)
  - TREMOR [None]
  - AMNESIA [None]
  - PULSE ABSENT [None]
  - AMENORRHOEA [None]
  - HYPOTHALAMO-PITUITARY DISORDER [None]
  - BREAST DISCHARGE [None]
  - MAMMARY DUCT ECTASIA [None]
  - BLOOD PROLACTIN INCREASED [None]
  - BLOOD PRESSURE DECREASED [None]
  - HEART RATE DECREASED [None]
  - DROOLING [None]
  - ABASIA [None]
  - PARKINSONISM [None]
  - CSF VOLUME INCREASED [None]
  - CONFUSIONAL STATE [None]
  - URINARY INCONTINENCE [None]
  - GALACTORRHOEA [None]
